FAERS Safety Report 5799256-2 (Version None)
Quarter: 2008Q3

REPORT INFORMATION
  Report Type: 
  Country: None (occurrence: None)
  Receive Date: 20080701
  Receipt Date: 20080624
  Transmission Date: 20090109
  Serious: Yes (Other)
  Sender: FDA-Public Use
  Company Number: 2008016638

PATIENT
  Age: 84 Year
  Sex: Female
  Weight: 51.7101 kg

DRUGS (5)
  1. BENADRYL [Suspect]
     Indication: SEASONAL ALLERGY
     Dosage: 1TABLET (ONLY) 1X  PER DAY (1 IN 1 D),ORAL
     Route: 048
     Dates: start: 20080617, end: 20080617
  2. ATENOLOL [Concomitant]
  3. LEVOTHYROXINE SODIUM [Concomitant]
  4. LASIX [Concomitant]
  5. VITAMIN B12 [Concomitant]

REACTIONS (3)
  - BLOOD PRESSURE INCREASED [None]
  - FEELING HOT [None]
  - HEADACHE [None]
